FAERS Safety Report 5835110-5 (Version None)
Quarter: 2008Q4

REPORT INFORMATION
  Report Type: 
  Country: None (occurrence: None)
  Receive Date: 20080805
  Receipt Date: 20080805
  Transmission Date: 20090506
  Serious: Yes (Hospitalization)
  Sender: FDA-Public Use
  Company Number: None

PATIENT
  Sex: Male
  Weight: 79.3 kg

DRUGS (2)
  1. CLOFARABINE 20MG/ML GENZYME [Suspect]
     Indication: ACUTE MYELOID LEUKAEMIA
     Dosage: 58.2 MG DAILY ON DAYS 1-5 IV
     Route: 042
     Dates: start: 20080604, end: 20080608
  2. GEMTUZMAB OZOGAMICIN  5 MG [Suspect]
     Dosage: 5.8 MG DAILY ON D 1, 4, IV
     Route: 042
     Dates: start: 20080604, end: 20080610

REACTIONS (1)
  - INFECTION [None]
